FAERS Safety Report 15258183 (Version 1)
Quarter: 2018Q3

REPORT INFORMATION
  Report Type: Spontaneous
  Country: US (occurrence: US)
  Receive Date: 20180809
  Receipt Date: 20180809
  Transmission Date: 20181010
  Serious: No
  Sender: FDA-Public Use
  Company Number: US-TEVA-2018-US-940568

PATIENT

DRUGS (1)
  1. AMPHETAMINE W/DEXTROAMPHETAMINE [Suspect]
     Active Substance: AMPHETAMINE SULFATE\DEXTROAMPHETAMINE
     Route: 065

REACTIONS (8)
  - Nausea [Unknown]
  - Vomiting [Unknown]
  - Malaise [Unknown]
  - Dizziness [Unknown]
  - Disturbance in attention [Unknown]
  - Dysstasia [Unknown]
  - Dysgeusia [Unknown]
  - Drug ineffective [Unknown]

NARRATIVE: CASE EVENT DATE: 2018
